FAERS Safety Report 5323864-6 (Version None)
Quarter: 2007Q2

REPORT INFORMATION
  Report Type: 
  Country: None (occurrence: None)
  Receive Date: 20070509
  Receipt Date: 20070509
  Transmission Date: 20071010
  Serious: Yes (Hospitalization)
  Sender: FDA-Public Use
  Company Number: None

PATIENT
  Age: 55 Year
  Sex: Male

DRUGS (1)
  1. REQUIP [Suspect]
     Indication: MUSCLE SPASMS
     Dosage: RECENTLY STARTED

REACTIONS (6)
  - CHEST PAIN [None]
  - DIZZINESS [None]
  - HYPOAESTHESIA [None]
  - PAIN IN JAW [None]
  - PARAESTHESIA [None]
  - VISION BLURRED [None]
